FAERS Safety Report 14180788 (Version 4)
Quarter: 2019Q2

REPORT INFORMATION
  Report Type: Report from Study
  Country: US (occurrence: US)
  Receive Date: 20171110
  Receipt Date: 20190405
  Transmission Date: 20190711
  Serious: Yes (Hospitalization)
  Sender: FDA-Public Use
  Company Number: US-ACTELION-A-NJ2017-162091

PATIENT
  Age: 57 Year
  Sex: Female
  Weight: 117.91 kg

DRUGS (3)
  1. OPSUMIT [Suspect]
     Active Substance: MACITENTAN
     Indication: PULMONARY ARTERIAL HYPERTENSION
     Dosage: 10 MG, QD
     Route: 048
  2. ADEMPAS [Concomitant]
     Active Substance: RIOCIGUAT
  3. DILTIAZEM. [Concomitant]
     Active Substance: DILTIAZEM

REACTIONS (18)
  - Chronic obstructive pulmonary disease [Unknown]
  - Malaise [Unknown]
  - Palpitations [Unknown]
  - Oedema [Unknown]
  - Cough [Unknown]
  - Ascites [Unknown]
  - Fatigue [Unknown]
  - Dyspnoea exertional [Unknown]
  - Dyspnoea [Unknown]
  - Blood potassium decreased [Unknown]
  - Carbon dioxide increased [Unknown]
  - Blood potassium increased [Unknown]
  - Chest pain [Unknown]
  - Carbon dioxide decreased [Unknown]
  - Condition aggravated [Unknown]
  - Dizziness [Unknown]
  - Dyspnoea at rest [Unknown]
  - Product dose omission [Unknown]

NARRATIVE: CASE EVENT DATE: 20190322
